FAERS Safety Report 4414754-1 (Version None)
Quarter: 2004Q3

REPORT INFORMATION
  Report Type: 
  Country: None (occurrence: None)
  Receive Date: 20040804
  Receipt Date: 20030821
  Transmission Date: 20050211
  Serious: No
  Sender: FDA-Public Use
  Company Number: US-BRISTOL-MYERS SQUIBB COMPANY-12362117

PATIENT
  Age: 77 Year
  Sex: Male
  Weight: 85 kg

DRUGS (7)
  1. GLUCOVANCE [Suspect]
     Indication: DIABETES MELLITUS
     Route: 048
     Dates: start: 20030701
  2. HYDROCHLOROTHIAZIDE [Concomitant]
  3. LIPITOR [Concomitant]
  4. LEVOTHYROXINE SODIUM [Concomitant]
  5. ACCUPRIL [Concomitant]
  6. METOPROLOL [Concomitant]
  7. NORVASC [Concomitant]

REACTIONS (1)
  - RASH MACULAR [None]
